FAERS Safety Report 7359565-2 (Version None)
Quarter: 2011Q1

REPORT INFORMATION
  Report Type: 
  Country: None (occurrence: None)
  Receive Date: 20110317
  Receipt Date: 20100315
  Transmission Date: 20110831
  Serious: No
  Sender: FDA-Public Use
  Company Number: US-PFIZER INC-2009263751

PATIENT
  Sex: Female
  Weight: 58.957 kg

DRUGS (4)
  1. LIPITOR [Suspect]
     Dosage: 20 MG, 1X/DAY
  2. AVALIDE [Concomitant]
     Dosage: UNK
  3. AMLODIPINE BESYLATE [Suspect]
     Dosage: 5 MG, 1X/DAY
  4. METOPROLOL TARTRATE [Concomitant]
     Dosage: 25 MG, UNK

REACTIONS (5)
  - INFLUENZA LIKE ILLNESS [None]
  - DECREASED APPETITE [None]
  - DIZZINESS [None]
  - GAIT DISTURBANCE [None]
  - MALAISE [None]
